FAERS Safety Report 23017693 (Version 1)
Quarter: 2023Q4

REPORT INFORMATION
  Report Type: Report from Study
  Country: PH (occurrence: PH)
  Receive Date: 20231003
  Receipt Date: 20231003
  Transmission Date: 20240110
  Serious: Yes (Hospitalization)
  Sender: FDA-Public Use
  Company Number: PH-002147023-NVSC2023PH211040

PATIENT
  Age: 49 Year
  Sex: Female
  Weight: 57 kg

DRUGS (1)
  1. ENTRESTO [Suspect]
     Active Substance: SACUBITRIL\VALSARTAN
     Indication: Cardiac failure
     Dosage: 1 DOSAGE FORM, BID, (50 MG, 8AM AND 8PM)
     Route: 048

REACTIONS (1)
  - Cardiac failure [Unknown]
